FAERS Safety Report 24265861 (Version 2)
Quarter: 2024Q4

REPORT INFORMATION
  Report Type: Spontaneous
  Country: FR (occurrence: FR)
  Receive Date: 20240830
  Receipt Date: 20241217
  Transmission Date: 20250114
  Serious: Yes (Hospitalization, Other)
  Sender: BRISTOL-MYERS SQUIBB COMPANY
  Company Number: FR-CHEPLA-2024010573

PATIENT
  Age: 32 Year
  Sex: Male

DRUGS (5)
  1. AZACITIDINE [Suspect]
     Active Substance: AZACITIDINE
     Indication: Polyarteritis nodosa
     Dosage: 3 COURSES
  2. AZACITIDINE [Suspect]
     Active Substance: AZACITIDINE
     Indication: Myelodysplastic syndrome
  3. PREDNISONE [Concomitant]
     Active Substance: PREDNISONE
     Indication: Polyarteritis nodosa
  4. PREDNISONE [Concomitant]
     Active Substance: PREDNISONE
     Indication: Myelodysplastic syndrome
     Dosage: GRADUAL REDUCTION
  5. HYDROXYUREA [Concomitant]
     Active Substance: HYDROXYUREA
     Indication: Sickle cell disease

REACTIONS (7)
  - Graft versus host disease [Unknown]
  - Acute chest syndrome [Unknown]
  - Shock haemorrhagic [Unknown]
  - Retroperitoneal haematoma [Unknown]
  - Renal aneurysm [Unknown]
  - Aneurysm ruptured [Unknown]
  - Sickle cell anaemia with crisis [Unknown]
